FAERS Safety Report 12100118 (Version 1)
Quarter: 2016Q1

REPORT INFORMATION
  Report Type: Spontaneous
  Country: US (occurrence: None)
  Receive Date: 20160219
  Receipt Date: 20160219
  Transmission Date: 20160526
  Serious: No
  Sender: FDA-Public Use
  Company Number: None

PATIENT
  Age: 46 Year
  Sex: Female

DRUGS (4)
  1. ZOLOFT [Concomitant]
     Active Substance: SERTRALINE HYDROCHLORIDE
  2. KLONOPIN REMEVEN [Concomitant]
  3. CALCIPOTRIENE. [Concomitant]
     Active Substance: CALCIPOTRIENE
  4. REMEVEN [Suspect]
     Active Substance: UREA
     Indication: PSORIASIS
     Dosage: APPLY TWICE DAILY
     Dates: start: 20160218, end: 20160218

REACTIONS (2)
  - Application site pain [None]
  - Product contamination physical [None]

NARRATIVE: CASE EVENT DATE: 20160218
